FAERS Safety Report 23898203 (Version 3)
Quarter: 2024Q3

REPORT INFORMATION
  Report Type: Spontaneous
  Country: US (occurrence: US)
  Receive Date: 20240524
  Receipt Date: 20240731
  Transmission Date: 20241016
  Serious: No
  Sender: CALLIDITAS THERAPEUTICS
  Company Number: US-Calliditas-2024CAL00776

PATIENT
  Age: 75 Year
  Sex: Male
  Weight: 64.4 kg

DRUGS (1)
  1. TARPEYO [Suspect]
     Active Substance: BUDESONIDE
     Indication: IgA nephropathy
     Route: 048
     Dates: start: 20240417

REACTIONS (11)
  - Diarrhoea [Unknown]
  - Dizziness [Not Recovered/Not Resolved]
  - Limb discomfort [Unknown]
  - Fatigue [Unknown]
  - Inappropriate schedule of product administration [Unknown]
  - Malaise [Unknown]
  - Intentional underdose [Not Recovered/Not Resolved]
  - Dyspnoea exertional [Unknown]
  - Skin wrinkling [Unknown]
  - Skin exfoliation [Unknown]
  - Blood glucose increased [Unknown]
